FAERS Safety Report 6369029-0 (Version None)
Quarter: 2009Q3

REPORT INFORMATION
  Report Type: 
  Country: None (occurrence: None)
  Receive Date: 20090922
  Receipt Date: 20090910
  Transmission Date: 20100115
  Serious: Yes (Other)
  Sender: FDA-Public Use
  Company Number: PHHY2009MX37643

PATIENT
  Age: 11 Year
  Sex: Female

DRUGS (2)
  1. RITALIN LA [Suspect]
     Indication: ATTENTION DEFICIT/HYPERACTIVITY DISORDER
     Dosage: 20 MG PER DAY
     Route: 048
     Dates: start: 20080101
  2. RITALIN LA [Suspect]
     Dosage: 30 MG PER DAY
     Route: 048
     Dates: start: 20090101, end: 20090515

REACTIONS (10)
  - ALOPECIA [None]
  - CHOLESTASIS [None]
  - DECREASED APPETITE [None]
  - EPSTEIN-BARR VIRAEMIA [None]
  - HEPATITIS A [None]
  - HEPATITIS E [None]
  - HYPERBILIRUBINAEMIA [None]
  - INSOMNIA [None]
  - JAUNDICE [None]
  - YELLOW SKIN [None]
